FAERS Safety Report 10619627 (Version 1)
Quarter: 2014Q4

REPORT INFORMATION
  Report Type: Report from Study
  Country: JP (occurrence: JP)
  Receive Date: 20141202
  Receipt Date: 20141202
  Transmission Date: 20150529
  Serious: Yes (Death, Other)
  Sender: FDA-Public Use
  Company Number: JP-PFIZER INC-2014328264

PATIENT
  Age: 82 Year
  Sex: Male
  Weight: 49 kg

DRUGS (4)
  1. NOVASTAN [Suspect]
     Active Substance: ARGATROBAN
     Indication: ANTICOAGULANT THERAPY
     Dosage: 25MG/H X 4H (3 IN 1 WK)
     Route: 041
     Dates: start: 20140129, end: 20140317
  2. LASIX [Concomitant]
     Active Substance: FUROSEMIDE
     Indication: RENAL DISORDER
     Dosage: 40 MG, 1X/DAY
     Route: 048
     Dates: start: 20140106, end: 20140317
  3. HEPARIN SODIUM. [Concomitant]
     Active Substance: HEPARIN SODIUM
     Dosage: UNK
     Route: 051
     Dates: start: 20140108
  4. TAKEPRON [Concomitant]
     Active Substance: LANSOPRAZOLE
     Indication: RENAL DISORDER
     Dosage: 30 MG, 1X/DAY
     Route: 048
     Dates: start: 20131209, end: 20140317

REACTIONS (2)
  - Device related infection [Recovering/Resolving]
  - Gastrointestinal haemorrhage [Fatal]

NARRATIVE: CASE EVENT DATE: 20140302
